FAERS Safety Report 7800494-5 (Version None)
Quarter: 2011Q4

REPORT INFORMATION
  Report Type: 
  Country: None (occurrence: None)
  Receive Date: 20111006
  Receipt Date: 20110926
  Transmission Date: 20120403
  Serious: Yes (Hospitalization)
  Sender: FDA-Public Use
  Company Number: US-BAYER-2011-024945

PATIENT
  Age: 35 Year
  Sex: Female
  Weight: 88.889 kg

DRUGS (20)
  1. CITALOPRAM HYDROBROMIDE [Concomitant]
     Indication: DEPRESSION
     Dosage: UNK
     Dates: start: 20080201, end: 20081101
  2. AZITHROMYCIN [Concomitant]
     Dosage: 250 MG, UNK
     Dates: start: 20080401
  3. METHSCOPOLAMINE BROMIDE [Concomitant]
     Dosage: 2.5 MG, UNK
     Dates: start: 20080530
  4. OXYCODONE HCL AND ACETAMINOPHEN [Concomitant]
     Dosage: 5/325 MG
     Dates: start: 20080630
  5. RELEASE AND RENEW [Concomitant]
     Dosage: UNK
     Dates: start: 20080522
  6. YASMIN [Suspect]
     Indication: ACNE
     Dosage: UNK
     Dates: start: 20050221, end: 20050401
  7. DROSPIRENONE AND ETHINYL ESTRADIOL [Suspect]
     Indication: ACNE
     Dosage: UNK
     Dates: start: 20080702, end: 20080730
  8. CYTOMEL [Concomitant]
     Dosage: 5 MCG/24HR, UNK
     Dates: start: 20071223, end: 20080530
  9. IBUPROFEN [Concomitant]
     Dosage: 800 MG, UNK
     Dates: start: 20080607
  10. DROSPIRENONE AND ETHINYL ESTRADIOL [Suspect]
     Indication: CONTRACEPTION
  11. HYDROCORTISONE [Concomitant]
     Dosage: 5 MG, UNK
     Dates: start: 20080530
  12. MITOMAX [Concomitant]
     Dosage: UNK
     Dates: start: 20080522
  13. TRAMADOL HCL [Concomitant]
     Indication: BACK PAIN
     Dosage: UNK
     Dates: start: 20080522
  14. YASMIN [Suspect]
     Indication: CONTRACEPTION
     Dosage: UNK
     Dates: start: 20051001, end: 20051101
  15. YASMIN [Suspect]
     Dosage: UNK
     Dates: start: 20080101, end: 20080628
  16. VITAMIN B COMPLEX CAP [Concomitant]
     Dosage: UNK
     Dates: start: 20080522
  17. YASMIN [Suspect]
     Dosage: UNK
     Dates: start: 20060901, end: 20061101
  18. CYANOCOBALAMIN [Concomitant]
     Indication: VITAMIN B12 DEFICIENCY
     Dosage: UNK
     Dates: start: 20071201, end: 20081001
  19. REST AND RESTORE [Concomitant]
     Indication: FIBROMYALGIA
     Dosage: UNK
     Dates: start: 20080522
  20. CLONIDINE [Concomitant]
     Indication: HYPERTENSION
     Dosage: UNK
     Dates: start: 20050101, end: 20080901

REACTIONS (6)
  - EMOTIONAL DISTRESS [None]
  - PULMONARY EMBOLISM [None]
  - PAIN [None]
  - GENERAL PHYSICAL HEALTH DETERIORATION [None]
  - INJURY [None]
  - ANXIETY [None]
